FAERS Safety Report 17535212 (Version 4)
Quarter: 2021Q1

REPORT INFORMATION
  Report Type: Spontaneous
  Country: US (occurrence: US)
  Receive Date: 20200312
  Receipt Date: 20210224
  Transmission Date: 20210419
  Serious: No
  Sender: FDA-Public Use
  Company Number: US-AKCEA THERAPEUTICS-2019IS001819

PATIENT
  Age: 72 Year
  Sex: Male

DRUGS (5)
  1. LOPERAMIDE [Concomitant]
     Active Substance: LOPERAMIDE
     Route: 065
  2. MELATONIN [Concomitant]
     Active Substance: MELATONIN
     Route: 065
  3. ISSD (INTEGRATED SYRINGE SAFETY DEVICE) [Suspect]
     Active Substance: DEVICE
  4. AMITIZA [Concomitant]
     Active Substance: LUBIPROSTONE
     Route: 065
  5. TEGSEDI [Suspect]
     Active Substance: INOTERSEN SODIUM
     Indication: HEREDITARY NEUROPATHIC AMYLOIDOSIS
     Route: 058

REACTIONS (14)
  - Urine abnormality [Not Recovered/Not Resolved]
  - Neuralgia [Unknown]
  - Bacterial test positive [Not Recovered/Not Resolved]
  - Red blood cells urine positive [Unknown]
  - Cough [Unknown]
  - Musculoskeletal stiffness [Unknown]
  - Urinary casts [Not Recovered/Not Resolved]
  - Headache [Unknown]
  - Urine protein/creatinine ratio increased [Not Recovered/Not Resolved]
  - Muscle spasms [Unknown]
  - Blood creatinine decreased [Not Recovered/Not Resolved]
  - Crystal urine present [Not Recovered/Not Resolved]
  - Feeling cold [Unknown]
  - Platelet count decreased [Not Recovered/Not Resolved]

NARRATIVE: CASE EVENT DATE: 20201020
